FAERS Safety Report 8011432-7 (Version None)
Quarter: 2011Q4

REPORT INFORMATION
  Report Type: 
  Country: None (occurrence: None)
  Receive Date: 20111228
  Receipt Date: 20111220
  Transmission Date: 20120403
  Serious: Yes (Other)
  Sender: FDA-Public Use
  Company Number: US-PURDUE-USA-2011-0075797

PATIENT
  Age: 82 Year
  Sex: Female

DRUGS (12)
  1. LANTUS [Concomitant]
     Indication: DIABETES MELLITUS
  2. NOVOLOG [Concomitant]
     Indication: DIABETES MELLITUS
  3. MULTIPLE VITAMINS [Concomitant]
     Indication: PRODUCT USED FOR UNKNOWN INDICATION
  4. ASPIRIN [Concomitant]
     Indication: PRODUCT USED FOR UNKNOWN INDICATION
     Dosage: 81 MG, UNK
  5. PLAVIX [Concomitant]
     Indication: PRODUCT USED FOR UNKNOWN INDICATION
  6. METOPROLOL SUCCINATE [Concomitant]
     Indication: PRODUCT USED FOR UNKNOWN INDICATION
  7. COLACE CAPSULES 100 MG [Suspect]
     Indication: CONSTIPATION
  8. OMEGA 3                            /06852001/ [Concomitant]
     Indication: PRODUCT USED FOR UNKNOWN INDICATION
  9. VITAMIN D [Concomitant]
     Indication: PRODUCT USED FOR UNKNOWN INDICATION
  10. COLACE CAPSULES 100 MG [Suspect]
     Indication: BOWEL MOVEMENT IRREGULARITY
     Dosage: 300 MG, DAILY PRN
     Route: 048
  11. VITAMIN C                          /00008001/ [Concomitant]
     Indication: PRODUCT USED FOR UNKNOWN INDICATION
  12. MECLIZINE [Concomitant]
     Indication: PRODUCT USED FOR UNKNOWN INDICATION
     Dosage: 25 MG, UNK

REACTIONS (3)
  - HYPERHIDROSIS [None]
  - BLOOD GLUCOSE DECREASED [None]
  - MIDDLE INSOMNIA [None]
